FAERS Safety Report 11433741 (Version 2)
Quarter: 2015Q3

REPORT INFORMATION
  Report Type: Report from Study
  Country: BR (occurrence: BR)
  Receive Date: 20150831
  Receipt Date: 20150911
  Transmission Date: 20151125
  Serious: Yes (Other)
  Sender: FDA-Public Use
  Company Number: PHHY2015BR102918

PATIENT
  Sex: Female
  Weight: 67 kg

DRUGS (1)
  1. ACLASTA [Suspect]
     Active Substance: ZOLEDRONIC ACID
     Indication: OSTEOPOROSIS
     Dosage: 2 DF, Q12MO
     Route: 065

REACTIONS (8)
  - Nephrolithiasis [Unknown]
  - Pain [Unknown]
  - Joint injury [Unknown]
  - Dengue fever [Unknown]
  - Oedematous kidney [Unknown]
  - Renal disorder [Unknown]
  - Skin injury [Unknown]
  - Fall [Unknown]
